FAERS Safety Report 12646866 (Version 3)
Quarter: 2016Q4

REPORT INFORMATION
  Report Type: Report from Study
  Country: FR (occurrence: FR)
  Receive Date: 20160812
  Receipt Date: 20161019
  Transmission Date: 20170207
  Serious: Yes (Other)
  Sender: FDA-Public Use
  Company Number: FR-CLINIGEN GROUP PLC/ CLINIGEN HEALTHCARE LTD-FR-CLGN-16-00169

PATIENT
  Age: 1 Year
  Sex: Female
  Weight: 9 kg

DRUGS (14)
  1. UVESTEROL D [Concomitant]
     Active Substance: ERGOCALCIFEROL
     Indication: VITAMIN SUPPLEMENTATION
     Route: 048
     Dates: start: 20150412, end: 20150625
  2. CYMEVAN [Concomitant]
     Active Substance: GANCICLOVIR
     Indication: PNEUMONIA CYTOMEGALOVIRAL
     Route: 042
     Dates: start: 20150417, end: 20150511
  3. FERROSTANE [Concomitant]
     Indication: ANAEMIA
     Route: 048
     Dates: start: 20150412
  4. PROTOPIC [Concomitant]
     Active Substance: TACROLIMUS
     Indication: DERMATITIS PSORIASIFORM
     Route: 003
     Dates: start: 20150412
  5. AUGMENTIN [Concomitant]
     Active Substance: AMOXICILLIN\CLAVULANATE POTASSIUM
     Indication: PNEUMONIA
     Dates: start: 20150410, end: 20150419
  6. FOSCAVIR [Suspect]
     Active Substance: FOSCARNET SODIUM
     Indication: PNEUMONIA CYTOMEGALOVIRAL
     Route: 042
     Dates: start: 20150523, end: 20150605
  7. PRIVIGEN [Concomitant]
     Active Substance: HUMAN IMMUNOGLOBULIN G
     Indication: THROMBOCYTOPENIA
     Dates: start: 20150617, end: 20150618
  8. GRANOCYTE [Concomitant]
     Active Substance: LENOGRASTIM
     Indication: PROPHYLAXIS
     Dates: start: 20150511
  9. RED BLOOD CELL TRANSFUSION [Concomitant]
     Indication: BLOOD DISORDER
     Dates: start: 20150515
  10. FOSCAVIR [Suspect]
     Active Substance: FOSCARNET SODIUM
     Route: 042
     Dates: start: 20150612
  11. BACTRIM [Suspect]
     Active Substance: SULFAMETHOXAZOLE\TRIMETHOPRIM
     Indication: BLOOD DISORDER
     Route: 048
     Dates: start: 20150417
  12. TIORFAN [Concomitant]
     Active Substance: RACECADOTRIL
     Indication: DIARRHOEA
     Dates: start: 20150412
  13. VENTOLINE [Concomitant]
     Active Substance: ALBUTEROL
     Indication: PNEUMONIA
     Dates: start: 20150410
  14. GRANOCYTE [Concomitant]
     Active Substance: LENOGRASTIM
     Indication: NEUTROPENIA

REACTIONS (2)
  - Off label use [Unknown]
  - Hepatic failure [Recovered/Resolved]

NARRATIVE: CASE EVENT DATE: 20150601
